FAERS Safety Report 8576736 (Version 4)
Quarter: 2013Q3

REPORT INFORMATION
  Report Type: Report from Study
  Country: US (occurrence: US)
  Receive Date: 20120523
  Receipt Date: 20130712
  Transmission Date: 20140515
  Serious: Yes (Hospitalization)
  Sender: FDA-Public Use
  Company Number: US-ABBOTT-12P-163-0932827-00

PATIENT
  Age: 66 Year
  Sex: Female
  Weight: 90 kg

DRUGS (9)
  1. HUMIRA [Suspect]
     Indication: PSORIASIS
     Route: 058
     Dates: start: 20111122, end: 20120306
  2. INSULIN DETEMIR [Concomitant]
     Indication: DIABETES MELLITUS
     Dates: start: 201104
  3. PRAVASTATIN [Concomitant]
     Indication: BLOOD CHOLESTEROL INCREASED
     Dates: start: 2009
  4. LISINOPRIL [Concomitant]
     Indication: HYPERTENSION
     Dates: start: 1984
  5. ATENOLOL [Concomitant]
     Indication: HYPERTENSION
     Dates: start: 200902
  6. AMLODIPINE [Concomitant]
     Indication: HYPERTENSION
     Dates: start: 200902
  7. LEVOTHYROXINE [Concomitant]
     Indication: HYPOTHYROIDISM
     Dates: start: 2006
  8. METFORMIN [Concomitant]
     Indication: DIABETES MELLITUS
     Dates: start: 1984
  9. INSULIN ASPART [Concomitant]
     Indication: DIABETES MELLITUS
     Dates: start: 201104

REACTIONS (1)
  - Latent tuberculosis [Not Recovered/Not Resolved]
